FAERS Safety Report 8270880-0 (Version None)
Quarter: 2012Q2

REPORT INFORMATION
  Report Type: 
  Country: None (occurrence: None)
  Receive Date: 20120410
  Receipt Date: 20120410
  Transmission Date: 20120825
  Serious: Yes (Death, Hospitalization)
  Sender: FDA-Public Use
  Company Number: None

PATIENT
  Age: 60 Year
  Sex: Male
  Weight: 106.14 kg

DRUGS (1)
  1. WARFARIN SODIUM [Suspect]
     Dosage: 5MG
     Route: 048

REACTIONS (3)
  - BRAIN HERNIATION [None]
  - SUBDURAL HAEMATOMA [None]
  - CEREBRAL HAEMORRHAGE [None]
